FAERS Safety Report 10994649 (Version 1)
Quarter: 2015Q2

REPORT INFORMATION
  Report Type: Spontaneous
  Country: US (occurrence: US)
  Receive Date: 20150407
  Receipt Date: 20150407
  Transmission Date: 20150821
  Serious: No
  Sender: FDA-Public Use
  Company Number: US-PFIZER INC-2015116025

PATIENT
  Age: 23 Year
  Sex: Male

DRUGS (1)
  1. NEURONTIN [Suspect]
     Active Substance: GABAPENTIN
     Dosage: 1200M/DAY

REACTIONS (5)
  - Depression [Unknown]
  - Back pain [Unknown]
  - Pain in extremity [Unknown]
  - Feeling abnormal [Unknown]
  - Abdominal pain upper [Unknown]
